FAERS Safety Report 16112156 (Version 1)
Quarter: 2019Q1

REPORT INFORMATION
  Report Type: Spontaneous
  Country: US (occurrence: US)
  Receive Date: 20190325
  Receipt Date: 20190325
  Transmission Date: 20190418
  Serious: No
  Sender: FDA-Public Use
  Company Number: US-ASTRAZENECA-2019SE30675

PATIENT
  Age: 61 Year
  Sex: Female
  Weight: 54.9 kg

DRUGS (6)
  1. ATORVASTATIN [Concomitant]
     Active Substance: ATORVASTATIN
     Indication: BLOOD CHOLESTEROL ABNORMAL
     Dates: start: 20180716
  2. ATIVAN [Concomitant]
     Active Substance: LORAZEPAM
  3. ALPRAZOLAM. [Concomitant]
     Active Substance: ALPRAZOLAM
     Indication: ANXIETY
     Route: 065
  4. ALPRAZOLAM. [Concomitant]
     Active Substance: ALPRAZOLAM
     Indication: ANXIETY
     Route: 065
  5. SOMETHING FOR EITHER THE CHOLESTEROL OR PLAQUE BUILDUP [Concomitant]
  6. SYMBICORT [Suspect]
     Active Substance: BUDESONIDE\FORMOTEROL FUMARATE DIHYDRATE
     Route: 055

REACTIONS (4)
  - Insurance issue [Not Recovered/Not Resolved]
  - Product dose omission [Unknown]
  - Cataract [Not Recovered/Not Resolved]
  - Malaise [Unknown]
